FAERS Safety Report 13065220 (Version 3)
Quarter: 2017Q1

REPORT INFORMATION
  Report Type: Spontaneous
  Country: DK (occurrence: DK)
  Receive Date: 20161227
  Receipt Date: 20170117
  Transmission Date: 20170428
  Serious: Yes (Other)
  Sender: FDA-Public Use
  Company Number: DK-PFIZER INC-2016595374

PATIENT
  Age: 14 Year
  Sex: Male

DRUGS (5)
  1. QUETIAPINE. [Suspect]
     Active Substance: QUETIAPINE
     Indication: INSOMNIA
     Dosage: 25 MG, UNK
     Dates: start: 2015
  2. SERTRALIN PFIZER [Suspect]
     Active Substance: SERTRALINE HYDROCHLORIDE
     Indication: DEPRESSION
     Dosage: UNK
     Dates: start: 2013
  3. SERTRALIN PFIZER [Suspect]
     Active Substance: SERTRALINE HYDROCHLORIDE
     Dosage: 100 MG, UNK
     Dates: start: 201503
  4. SERTRALIN PFIZER [Suspect]
     Active Substance: SERTRALINE HYDROCHLORIDE
     Dosage: 50 MG, UNK
     Dates: end: 2016
  5. SERTRALIN PFIZER [Suspect]
     Active Substance: SERTRALINE HYDROCHLORIDE
     Dosage: 50 MG, UNK
     Dates: start: 2014

REACTIONS (7)
  - Derealisation [Unknown]
  - Fall [Unknown]
  - Apathy [Unknown]
  - Speech disorder [Unknown]
  - Facial bones fracture [Unknown]
  - Memory impairment [Not Recovered/Not Resolved]
  - Cotard^s syndrome [Unknown]

NARRATIVE: CASE EVENT DATE: 2015
